FAERS Safety Report 7746389-7 (Version None)
Quarter: 2011Q3

REPORT INFORMATION
  Report Type: 
  Country: None (occurrence: None)
  Receive Date: 20110913
  Receipt Date: 20110913
  Transmission Date: 20111222
  Serious: Yes (Other)
  Sender: FDA-Public Use
  Company Number: None

PATIENT
  Age: 48 Year
  Sex: Female
  Weight: 52.163 kg

DRUGS (1)
  1. TRIAD ALCOHOL PREP PAD [Suspect]
     Indication: INJECTION
     Dosage: NOT APPLICABLE
     Route: 061
     Dates: start: 20101205, end: 20101205

REACTIONS (1)
  - INJECTION SITE INFECTION [None]
